FAERS Safety Report 9095332 (Version 2)
Quarter: 2013Q1

REPORT INFORMATION
  Report Type: Spontaneous
  Country: US (occurrence: None)
  Receive Date: 20130123
  Receipt Date: 20130221
  Transmission Date: 20140127
  Serious: Yes (Hospitalization)
  Sender: FDA-Public Use
  Company Number: DKLU1087945

PATIENT
  Age: 9 Year
  Sex: Female

DRUGS (24)
  1. ELSPAR [Suspect]
     Indication: ACUTE LYMPHOCYTIC LEUKAEMIA
     Dosage: 1 DF DOSAVE FORM, INTRAVENOUS (NOT OTHERWISE SPECIFIED)
     Route: 042
     Dates: start: 20121202, end: 20121202
  2. DASATINIB [Suspect]
     Indication: ACUTE LYMPHOCYTIC LEUKAEMIA
     Route: 048
     Dates: start: 20121120
  3. IFOSFAMIDE [Suspect]
     Indication: ACUTE LYMPHOCYTIC LEUKAEMIA
     Route: 042
     Dates: start: 20121128, end: 20121130
  4. ETOPOSIDE [Suspect]
     Indication: ACUTE LYMPHOCYTIC LEUKAEMIA
     Route: 042
     Dates: start: 20121221, end: 20121223
  5. METHOTREXATE [Suspect]
     Indication: ACUTE LYMPHOCYTIC LEUKAEMIA
     Route: 037
     Dates: start: 20121127
  6. VINCRISTINE [Suspect]
     Indication: ACUTE LYMPHOCYTIC LEUKAEMIA
     Route: 042
     Dates: start: 20121128
  7. CYTARABINE [Suspect]
     Indication: ACUTE LYMPHOCYTIC LEUKAEMIA
     Route: 042
     Dates: start: 20121219, end: 20121220
  8. DAUNORUBICIN [Suspect]
     Indication: ACUTE LYMPHOCYTIC LEUKAEMIA
     Route: 042
     Dates: start: 20121201, end: 20121201
  9. PEGASPARGASE [Suspect]
     Indication: ACUTE LYMPHOCYTIC LEUKAEMIA
     Dosage: 1 DF DOSAGE FORM, INTRAVENOUS (NOT OTHERWISE SPECIFIED)
     Route: 042
     Dates: start: 20121202, end: 20121203
  10. DEXAMETHASONE [Suspect]
     Indication: ACUTE LYMPHOCYTIC LEUKAEMIA
     Route: 048
     Dates: start: 20121127, end: 20121223
  11. G-CSF [Suspect]
     Indication: ACUTE LYMPHOCYTIC LEUKAEMIA
     Dates: start: 20121224
  12. HYDROCORTISONE [Suspect]
     Indication: PRODUCT USED FOR UNKNOWN INDICATION
     Route: 037
     Dates: start: 20121224
  13. DIPHENHYDRAMINE(DIPHENHYDRAMINE HYDROCHLORIDE) [Concomitant]
  14. ONDANSETRON(ONDANSETRON) [Concomitant]
  15. SODIUM CHLORIDE(SODIUM CHLORIDE) [Concomitant]
  16. LORATADINE(LORATADINE) [Concomitant]
  17. DEXTROSE(GLUCOSE) [Concomitant]
  18. EPIPEN(EPINEPHRINE) [Concomitant]
  19. LASIX(FUROSEMIDE) [Concomitant]
  20. CHLORHEXIDINE GLUCONATE+BENZYDAMINE HCL(CHLORHEXIDINE GLUCONATE) [Concomitant]
  21. FAMOTIDINE(FAMOTIDINE) (INJECTION [Concomitant]
  22. LEUCOVORIN(FOLINIC ACID) [Concomitant]
  23. SULFAMETHOXAZOLE + TRIMETHOPRIM(BACTRIM) [Concomitant]
  24. ACETAMINOPHEN(PARACETAMOL) [Concomitant]

REACTIONS (16)
  - Febrile neutropenia [None]
  - Mucosal inflammation [None]
  - Dehydration [None]
  - Pneumonia [None]
  - Hyponatraemia [None]
  - Haemoglobin decreased [None]
  - Haematocrit decreased [None]
  - Diarrhoea [None]
  - Thrombocytopenia [None]
  - Enterocolitis [None]
  - Hypokalaemia [None]
  - Blood chloride decreased [None]
  - Protein total decreased [None]
  - Blood calcium decreased [None]
  - Basophil count increased [None]
  - Blood glucose increased [None]
